FAERS Safety Report 12387245 (Version 2)
Quarter: 2016Q2

REPORT INFORMATION
  Report Type: Spontaneous
  Country: US (occurrence: US)
  Receive Date: 20160519
  Receipt Date: 20160613
  Transmission Date: 20160815
  Serious: No
  Sender: FDA-Public Use
  Company Number: US-ELI_LILLY_AND_COMPANY-US201604010676

PATIENT
  Age: 56 Year
  Sex: Female

DRUGS (6)
  1. AMBIEN [Concomitant]
     Active Substance: ZOLPIDEM TARTRATE
  2. FORTEO [Suspect]
     Active Substance: TERIPARATIDE
     Indication: OSTEOPOROSIS
     Dosage: UNK, QD
     Route: 065
  3. CLONAZEPAM. [Concomitant]
     Active Substance: CLONAZEPAM
  4. GABAPENTIN. [Suspect]
     Active Substance: GABAPENTIN
     Indication: PRODUCT USED FOR UNKNOWN INDICATION
     Dosage: UNK, UNKNOWN
     Route: 065
  5. ROPINIROLE. [Concomitant]
     Active Substance: ROPINIROLE
  6. FORTEO [Suspect]
     Active Substance: TERIPARATIDE
     Indication: SPINAL FRACTURE
     Dosage: UNK, QD
     Route: 065

REACTIONS (16)
  - Contusion [Unknown]
  - Dysgeusia [Unknown]
  - Tremor [Unknown]
  - Tooth disorder [Unknown]
  - Stress [Unknown]
  - Vision blurred [Unknown]
  - Injection site pain [Unknown]
  - Feeling jittery [Unknown]
  - Migraine [Unknown]
  - Vertigo [Unknown]
  - Constipation [Unknown]
  - Arthralgia [Unknown]
  - Gingival disorder [Unknown]
  - Insomnia [Unknown]
  - Dizziness [Unknown]
  - Nausea [Unknown]

NARRATIVE: CASE EVENT DATE: 20160407
